FAERS Safety Report 13735410 (Version 6)
Quarter: 2018Q1

REPORT INFORMATION
  Report Type: Spontaneous
  Country: US (occurrence: US)
  Receive Date: 20170710
  Receipt Date: 20180131
  Transmission Date: 20180508
  Serious: Yes (Other)
  Sender: FDA-Public Use
  Company Number: US-PFIZER INC-2017294898

PATIENT
  Age: 56 Year
  Sex: Female

DRUGS (3)
  1. IBRANCE [Suspect]
     Active Substance: PALBOCICLIB
     Indication: BREAST CANCER
     Dosage: 125 MG, CYCLIC (TAKE 1 CAPSULE/ 21 DAYS OUT OF 28 DAY CYCLE)
     Route: 048
     Dates: start: 201702
  2. IBRANCE [Suspect]
     Active Substance: PALBOCICLIB
     Dosage: 125 MG, DAILY
     Route: 048
  3. IBRANCE [Suspect]
     Active Substance: PALBOCICLIB
     Dosage: 125 MG, CYCLIC, (DAILY 21 DAYS ON, 7 DAYS OFF)
     Route: 048
     Dates: start: 20170519

REACTIONS (7)
  - Pain in extremity [Unknown]
  - Pulmonary oedema [Unknown]
  - Pain [Unknown]
  - Headache [Unknown]
  - Neck pain [Unknown]
  - Fatigue [Unknown]
  - Stomatitis [Unknown]

NARRATIVE: CASE EVENT DATE: 20170802
